FAERS Safety Report 10173738 (Version 1)
Quarter: 2014Q2

REPORT INFORMATION
  Report Type: Report from Study
  Country: US (occurrence: US)
  Receive Date: 20140515
  Receipt Date: 20140515
  Transmission Date: 20141212
  Serious: Yes (Hospitalization)
  Sender: FDA-Public Use
  Company Number: US-SA-2014SA059339

PATIENT
  Sex: Male
  Weight: 90.9 kg

DRUGS (10)
  1. AFLIBERCEPT [Suspect]
     Indication: METASTATIC MALIGNANT MELANOMA
     Route: 042
     Dates: start: 20131202, end: 20131202
  2. AFLIBERCEPT [Suspect]
     Indication: METASTATIC MALIGNANT MELANOMA
     Route: 042
     Dates: start: 20140130, end: 20140130
  3. ALDESLEUKIN [Suspect]
     Indication: METASTATIC MALIGNANT MELANOMA
     Route: 065
     Dates: end: 20140115
  4. CADUET [Concomitant]
  5. ASPIRIN [Concomitant]
  6. VASOTEC [Concomitant]
  7. CLARITIN [Concomitant]
  8. LOPRESSOR [Concomitant]
  9. PROTONIX [Concomitant]
  10. FLOMAX [Concomitant]

REACTIONS (1)
  - Ejection fraction decreased [Recovering/Resolving]
